FAERS Safety Report 18561067 (Version 9)
Quarter: 2023Q1

REPORT INFORMATION
  Report Type: Report from Study
  Country: US (occurrence: US)
  Receive Date: 20201130
  Receipt Date: 20230131
  Transmission Date: 20230418
  Serious: Yes (Hospitalization, Other)
  Sender: FDA-Public Use
  Company Number: US-TAKEDA-US202014900

PATIENT
  Sex: Female
  Weight: 64 kg

DRUGS (55)
  1. HUMAN IMMUNOGLOBULIN G [Suspect]
     Active Substance: HUMAN IMMUNOGLOBULIN G
     Indication: Immunodeficiency common variable
     Dosage: 10 GRAM, 1/WEEK
     Route: 058
     Dates: start: 20120705
  2. HUMAN IMMUNOGLOBULIN G [Suspect]
     Active Substance: HUMAN IMMUNOGLOBULIN G
     Dosage: 10 GRAM, 1/WEEK
     Route: 058
     Dates: start: 20120709
  3. HUMAN IMMUNOGLOBULIN G [Suspect]
     Active Substance: HUMAN IMMUNOGLOBULIN G
     Dosage: 10 GRAM, 1/WEEK
     Route: 058
     Dates: start: 20120806
  4. CEFUROXIME [Suspect]
     Active Substance: CEFUROXIME
     Indication: Product used for unknown indication
     Route: 065
  5. DIPHENHYDRAMINE [Concomitant]
     Active Substance: DIPHENHYDRAMINE
     Route: 065
  6. OXYCODONE AND ACETAMINOPHEN [Concomitant]
     Active Substance: ACETAMINOPHEN\OXYCODONE HYDROCHLORIDE
  7. ALLEGRA ALLERGY [Concomitant]
     Active Substance: FEXOFENADINE HYDROCHLORIDE
  8. OXYCODONE [Concomitant]
     Active Substance: OXYCODONE
     Route: 065
  9. FUROSEMIDE [Concomitant]
     Active Substance: FUROSEMIDE
     Route: 065
  10. EPINEPHRINE [Concomitant]
     Active Substance: EPINEPHRINE
     Route: 065
  11. METOCLOPRAMIDE [Concomitant]
     Active Substance: METOCLOPRAMIDE
     Route: 065
  12. SYSTANE (HYPROMELLOSE 2910 (4000 MPA.S)) [Concomitant]
     Active Substance: HYPROMELLOSE 2910 (4000 MPA.S)
     Route: 065
  13. ATENOLOL [Concomitant]
     Active Substance: ATENOLOL
     Route: 065
  14. SPIRONOLACTONE AND HYDROCHLOROTHIAZIDE [Concomitant]
     Active Substance: HYDROCHLOROTHIAZIDE\SPIRONOLACTONE
  15. KLOR-CON [Concomitant]
     Active Substance: POTASSIUM CHLORIDE
     Route: 065
  16. MELOXICAM [Concomitant]
     Active Substance: MELOXICAM
     Route: 065
  17. LEVALBUTEROL [Concomitant]
     Active Substance: LEVALBUTEROL
     Route: 065
  18. RESTASIS [Concomitant]
     Active Substance: CYCLOSPORINE
     Route: 065
  19. FLUCONAZOLE [Concomitant]
     Active Substance: FLUCONAZOLE
     Route: 065
  20. SYNTHROID [Concomitant]
     Active Substance: LEVOTHYROXINE SODIUM
     Route: 065
  21. ZOLPIDEM [Concomitant]
     Active Substance: ZOLPIDEM TARTRATE
     Route: 065
  22. QUETIAPINE FUMARATE [Concomitant]
     Active Substance: QUETIAPINE FUMARATE
  23. NIACIN [Concomitant]
     Active Substance: NIACIN
     Route: 065
  24. OMEPRAZOLE [Concomitant]
     Active Substance: OMEPRAZOLE
     Route: 065
  25. MUCINEX [Concomitant]
     Active Substance: GUAIFENESIN
     Route: 065
  26. LISINOPRIL [Concomitant]
     Active Substance: LISINOPRIL
  27. POTASSIUM [Concomitant]
     Active Substance: POTASSIUM
     Route: 065
  28. MONTELUKAST SODIUM [Concomitant]
     Active Substance: MONTELUKAST SODIUM
  29. FISH OIL [Concomitant]
     Active Substance: FISH OIL
     Route: 065
  30. CYMBALTA [Concomitant]
     Active Substance: DULOXETINE HYDROCHLORIDE
     Route: 065
  31. VALIUM [Concomitant]
     Active Substance: DIAZEPAM
     Route: 065
  32. BACLOFEN [Concomitant]
     Active Substance: BACLOFEN
     Route: 065
  33. ADVAIR HFA [Concomitant]
     Active Substance: FLUTICASONE PROPIONATE\SALMETEROL XINAFOATE
  34. ADVAIR HFA [Concomitant]
     Active Substance: FLUTICASONE PROPIONATE\SALMETEROL XINAFOATE
     Route: 065
  35. MONTELUKAST [Concomitant]
     Active Substance: MONTELUKAST SODIUM
     Route: 065
  36. XOPENEX [Concomitant]
     Active Substance: LEVALBUTEROL HYDROCHLORIDE
     Route: 065
  37. CLINDAMYCIN HYDROCHLORIDE [Concomitant]
     Active Substance: CLINDAMYCIN HYDROCHLORIDE
     Route: 065
  38. ACETAMINOPHEN [Concomitant]
     Active Substance: ACETAMINOPHEN
     Route: 065
  39. QUETIAPINE [Concomitant]
     Active Substance: QUETIAPINE
     Route: 065
  40. ALBUTEROL SULFATE [Concomitant]
     Active Substance: ALBUTEROL SULFATE
  41. ZOLPIDEM TARTRATE [Concomitant]
     Active Substance: ZOLPIDEM TARTRATE
  42. CARVEDILOL [Concomitant]
     Active Substance: CARVEDILOL
  43. TRELEGY ELLIPTA [Concomitant]
     Active Substance: FLUTICASONE FUROATE\UMECLIDINIUM BROMIDE\VILANTEROL TRIFENATATE
  44. METOCLOPRAMIDE [Concomitant]
     Active Substance: METOCLOPRAMIDE
  45. ATORVASTATIN CALCIUM [Concomitant]
     Active Substance: ATORVASTATIN CALCIUM
  46. TRAMADOL HCL [Concomitant]
     Active Substance: TRAMADOL HYDROCHLORIDE
  47. VITAMIN D3 [Concomitant]
     Active Substance: CHOLECALCIFEROL
     Route: 065
  48. ACYCLOVIR [Concomitant]
     Active Substance: ACYCLOVIR
     Route: 065
  49. ZOFRAN [Concomitant]
     Active Substance: ONDANSETRON HYDROCHLORIDE
     Route: 065
  50. LASIX [Concomitant]
     Active Substance: FUROSEMIDE
     Route: 065
  51. ALBUTEROL [Concomitant]
     Active Substance: ALBUTEROL
     Route: 065
  52. VITAMIN C [Concomitant]
     Active Substance: ASCORBIC ACID
     Route: 065
  53. ASPIRIN [Concomitant]
     Active Substance: ASPIRIN
     Route: 065
  54. VITAMIN A [Concomitant]
     Active Substance: VITAMIN A
     Route: 065
  55. PERCOCET [Concomitant]
     Active Substance: ACETAMINOPHEN\OXYCODONE HYDROCHLORIDE
     Route: 065

REACTIONS (14)
  - Colitis ischaemic [Unknown]
  - Chronic obstructive pulmonary disease [Unknown]
  - Hypotension [Unknown]
  - Pneumonia [Unknown]
  - Pharyngitis streptococcal [Unknown]
  - Tonsillitis [Unknown]
  - Urine output decreased [Unknown]
  - Drug hypersensitivity [Unknown]
  - Wound infection [Unknown]
  - Post procedural infection [Unknown]
  - Folliculitis [Unknown]
  - Diarrhoea [Unknown]
  - Incorrect product administration duration [Unknown]
  - Device issue [Unknown]
